FAERS Safety Report 6374435-4 (Version None)
Quarter: 2009Q3

REPORT INFORMATION
  Report Type: 
  Country: None (occurrence: None)
  Receive Date: 20090924
  Receipt Date: 20090916
  Transmission Date: 20100115
  Serious: Yes (Other)
  Sender: FDA-Public Use
  Company Number: US-PFIZER INC-2009258517

PATIENT
  Sex: Female

DRUGS (3)
  1. DEPO-MEDROL [Suspect]
     Indication: OSTEOARTHRITIS
     Dosage: 40 MG/ML, SINGLE
     Route: 014
     Dates: start: 20090813
  2. DEPO-MEDROL [Suspect]
     Indication: PAIN
  3. ROPIVACAINE [Suspect]

REACTIONS (5)
  - EFFUSION [None]
  - INFECTION [None]
  - JOINT SWELLING [None]
  - PAIN [None]
  - PYREXIA [None]
